FAERS Safety Report 17908221 (Version 1)
Quarter: 2020Q2

REPORT INFORMATION
  Report Type: Spontaneous
  Country: GB (occurrence: GB)
  Receive Date: 20200617
  Receipt Date: 20200617
  Transmission Date: 20200714
  Serious: Yes (Hospitalization)
  Sender: FDA-Public Use
  Company Number: GB-MYLANLABS-2020M1056705

PATIENT
  Age: 74 Year
  Sex: Female

DRUGS (3)
  1. VANCOMYCIN [Suspect]
     Active Substance: VANCOMYCIN
     Indication: PNEUMONIA
     Dosage: 1250 MILLIGRAM, BID
     Route: 042
  2. METRONIDAZOLE. [Concomitant]
     Active Substance: METRONIDAZOLE
     Indication: LUNG ABSCESS
     Dosage: 500 MILLIGRAM, ADMINISTERED THRICE DAILY
     Route: 048
  3. CIPROFLOXACIN. [Concomitant]
     Active Substance: CIPROFLOXACIN
     Indication: PNEUMONIA
     Dosage: 500 MILLIGRAM, BID
     Route: 048

REACTIONS (4)
  - Drug reaction with eosinophilia and systemic symptoms [Recovered/Resolved]
  - Pleurisy [Recovered/Resolved]
  - Pleural effusion [Recovered/Resolved]
  - Acute kidney injury [Recovered/Resolved]
